FAERS Safety Report 19430604 (Version 6)
Quarter: 2021Q4

REPORT INFORMATION
  Report Type: Report from Study
  Country: CO (occurrence: CO)
  Receive Date: 20210617
  Receipt Date: 20211008
  Transmission Date: 20220303
  Serious: Yes (Other)
  Sender: FDA-Public Use
  Company Number: NVSC2021CO131712

PATIENT
  Sex: Female

DRUGS (1)
  1. BROLUCIZUMAB [Suspect]
     Active Substance: BROLUCIZUMAB
     Indication: Neovascularisation
     Dosage: 120 MG, QMO
     Route: 050

REACTIONS (5)
  - Blindness [Unknown]
  - Deafness [Unknown]
  - Eye discharge [Unknown]
  - Visual impairment [Unknown]
  - Ocular discomfort [Unknown]
